FAERS Safety Report 18560351 (Version 1)
Quarter: 2020Q4

REPORT INFORMATION
  Report Type: Spontaneous
  Country: FI (occurrence: FI)
  Receive Date: 20201130
  Receipt Date: 20201130
  Transmission Date: 20210114
  Serious: Yes (Death, Congenital Anomaly)
  Sender: FDA-Public Use
  Company Number: FI-ASTRAZENECA-2020SF55986

PATIENT

DRUGS (2)
  1. FORXIGA [Suspect]
     Active Substance: DAPAGLIFLOZIN
     Indication: TYPE 2 DIABETES MELLITUS
     Route: 064
     Dates: end: 20200909
  2. PRIMASPAN [Concomitant]
     Active Substance: ASPIRIN
     Route: 064

REACTIONS (3)
  - Heart disease congenital [Fatal]
  - Abortion induced [Fatal]
  - Maternal exposure during pregnancy [Fatal]

NARRATIVE: CASE EVENT DATE: 20201026
